FAERS Safety Report 18911651 (Version 2)
Quarter: 2021Q1

REPORT INFORMATION
  Report Type: Spontaneous
  Country: GB (occurrence: GB)
  Receive Date: 20210218
  Receipt Date: 20210223
  Transmission Date: 20210420
  Serious: Yes (Other)
  Sender: FDA-Public Use
  Company Number: GB-PFIZER INC-2021137096

PATIENT
  Age: 20 Year
  Sex: Female
  Weight: 76 kg

DRUGS (1)
  1. SERTRALINE HCL [Suspect]
     Active Substance: SERTRALINE HYDROCHLORIDE
     Indication: ANXIETY
     Dosage: 50 MG
     Route: 048
     Dates: start: 20200123

REACTIONS (4)
  - Fatigue [Not Recovered/Not Resolved]
  - Headache [Recovering/Resolving]
  - Vision blurred [Recovering/Resolving]
  - Nausea [Recovering/Resolving]

NARRATIVE: CASE EVENT DATE: 20210123
